FAERS Safety Report 15028027 (Version 1)
Quarter: 2018Q2

REPORT INFORMATION
  Report Type: Spontaneous
  Country: US (occurrence: US)
  Receive Date: 20180619
  Receipt Date: 20180619
  Transmission Date: 20180711
  Serious: No
  Sender: FDA-Public Use
  Company Number: US-BIOGEN-2018BI00595548

PATIENT
  Age: 62 Year
  Sex: Female

DRUGS (2)
  1. ZINC. [Concomitant]
     Active Substance: ZINC
     Indication: PRODUCT USED FOR UNKNOWN INDICATION
     Dosage: TAKE 100MG PER DAY
     Route: 065
  2. TECFIDERA [Suspect]
     Active Substance: DIMETHYL FUMARATE
     Indication: MULTIPLE SCLEROSIS
     Dosage: MAINTENANCE DOSE
     Route: 048
     Dates: start: 20180306, end: 20180613

REACTIONS (2)
  - Alopecia [Unknown]
  - Flushing [Unknown]

NARRATIVE: CASE EVENT DATE: 20180613
